FAERS Safety Report 9912596 (Version 2)
Quarter: 2014Q2

REPORT INFORMATION
  Report Type: Spontaneous
  Country: US (occurrence: None)
  Receive Date: 20140212
  Receipt Date: 20140611
  Transmission Date: 20141212
  Serious: Yes (Hospitalization)
  Sender: FDA-Public Use
  Company Number: 2014-US-001380

PATIENT
  Age: 62 Year
  Sex: Female
  Weight: 85.3 kg

DRUGS (5)
  1. XYREM [Suspect]
     Indication: CATAPLEXY
     Route: 048
     Dates: start: 200605, end: 2006
  2. XYREM [Suspect]
     Indication: NARCOLEPSY
     Route: 048
     Dates: start: 200605, end: 2006
  3. JINTELI (ETHINYLESTRADIOL, NORETHISTERONE ACETATE) [Concomitant]
  4. RAMIPRIL [Concomitant]
  5. SEROQUEL (QUETIAPINE FUMARATE) [Concomitant]

REACTIONS (5)
  - Intervertebral disc protrusion [None]
  - Intervertebral disc displacement [None]
  - Anxiety [None]
  - Drug tolerance [None]
  - Poor quality sleep [None]
